FAERS Safety Report 7619302-0 (Version None)
Quarter: 2011Q3

REPORT INFORMATION
  Report Type: 
  Country: None (occurrence: None)
  Receive Date: 20110718
  Receipt Date: 20110711
  Transmission Date: 20111222
  Serious: No
  Sender: FDA-Public Use
  Company Number: US-B.I. PHARMACEUTICALS,INC./RIDGEFIELD-2011-BP-16037BP

PATIENT
  Sex: Female

DRUGS (15)
  1. TRICOR [Concomitant]
     Indication: BLOOD CHOLESTEROL INCREASED
     Dosage: 145 MG
  2. VERAPAMIL [Concomitant]
     Indication: BLOOD PRESSURE
     Dosage: 360 MG
  3. LOSARTAN POTASSIUM [Concomitant]
     Indication: PROPHYLAXIS
     Dosage: 25 MG
  4. METHOTREXATE [Concomitant]
     Indication: RHEUMATOID ARTHRITIS
  5. CALCITRATE [Concomitant]
     Indication: PROPHYLAXIS
  6. METOPROLOL TARTRATE [Concomitant]
     Indication: BLOOD PRESSURE
     Dosage: 150 MG
  7. FUROSEMIDE [Concomitant]
     Indication: CARDIAC FAILURE CONGESTIVE
     Dosage: 20 MG
  8. AVENDIA [Concomitant]
     Indication: GLUCOSE TOLERANCE IMPAIRED
     Dosage: 4 MG
  9. DIGOXIN [Concomitant]
     Indication: CARDIAC FAILURE CONGESTIVE
     Dosage: 125 MG
  10. GLUCOSAMINE [Concomitant]
     Indication: RHEUMATOID ARTHRITIS
  11. REMACAID [Concomitant]
     Indication: RHEUMATOID ARTHRITIS
  12. FISH OIL [Concomitant]
     Indication: BLOOD CHOLESTEROL INCREASED
  13. FOLIC ACID [Concomitant]
     Indication: PROPHYLAXIS
  14. PRADAXA [Suspect]
     Indication: ATRIAL FIBRILLATION
     Dosage: 300 MG
     Route: 048
     Dates: start: 20110401, end: 20110523
  15. LIPITOR [Concomitant]
     Indication: BLOOD CHOLESTEROL INCREASED
     Dosage: 10 MG

REACTIONS (2)
  - URTICARIA [None]
  - DYSPNOEA [None]
